FAERS Safety Report 5820025-9 (Version None)
Quarter: 2008Q3

REPORT INFORMATION
  Report Type: 
  Country: None (occurrence: None)
  Receive Date: 20080718
  Receipt Date: 20080718
  Transmission Date: 20090109
  Serious: Yes (Hospitalization)
  Sender: FDA-Public Use
  Company Number: None

PATIENT
  Sex: Female
  Weight: 20.2 kg

DRUGS (1)
  1. IBUPROFEN TABLETS [Suspect]
     Indication: HEADACHE
     Dosage: 2-3 DOSES PER WEEK PO
     Route: 048
     Dates: start: 20080510, end: 20080619

REACTIONS (3)
  - CRYING [None]
  - GASTRITIS [None]
  - HAEMATEMESIS [None]
